FAERS Safety Report 8556427-X (Version None)
Quarter: 2012Q3

REPORT INFORMATION
  Report Type: 
  Country: None (occurrence: None)
  Receive Date: 20120801
  Receipt Date: 20120727
  Transmission Date: 20120928
  Serious: Yes (Other)
  Sender: FDA-Public Use
  Company Number: PHHY2012JP057489

PATIENT
  Age: 59 Year
  Sex: Female

DRUGS (1)
  1. VOLTAREN [Suspect]
     Dosage: 100 MG, IN TWO DOSES PER DAY
     Route: 054

REACTIONS (2)
  - FAECES DISCOLOURED [None]
  - DIARRHOEA [None]
